FAERS Safety Report 14452469 (Version 2)
Quarter: 2018Q2

REPORT INFORMATION
  Report Type: Spontaneous
  Country: US (occurrence: US)
  Receive Date: 20180129
  Receipt Date: 20180420
  Transmission Date: 20180711
  Serious: No
  Sender: FDA-Public Use
  Company Number: US-PFIZER INC-2018036865

PATIENT
  Age: 74 Year
  Sex: Female
  Weight: 53.52 kg

DRUGS (1)
  1. ADVIL PM [Suspect]
     Active Substance: DIPHENHYDRAMINE CITRATE\IBUPROFEN
     Indication: SLEEP DISORDER
     Dosage: 200 MG, 1X/DAY (ONE ROUND CAPSULE, BY MOUTH ONCE PER DAY)
     Route: 048
     Dates: start: 201801, end: 201801

REACTIONS (3)
  - Intentional product misuse [Unknown]
  - Product size issue [Recovered/Resolved]
  - Foreign body in respiratory tract [Recovered/Resolved]

NARRATIVE: CASE EVENT DATE: 201801
